FAERS Safety Report 4389808-0 (Version None)
Quarter: 2004Q2

REPORT INFORMATION
  Report Type: 
  Country: None (occurrence: None)
  Receive Date: 20040630
  Receipt Date: 20040617
  Transmission Date: 20050107
  Serious: Yes (Other)
  Sender: FDA-Public Use
  Company Number: 2004036250

PATIENT
  Age: 67 Year
  Sex: Female
  Weight: 44 kg

DRUGS (14)
  1. DIFLUCAN [Suspect]
     Indication: ENCEPHALITIS
     Dosage: 200 MG, INTRAVENOUS
     Route: 042
     Dates: start: 20040521, end: 20040527
  2. DIFLUCAN [Suspect]
     Indication: MENINGITIS
     Dosage: 200 MG, INTRAVENOUS
     Route: 042
     Dates: start: 20040521, end: 20040527
  3. DIFLUCAN [Suspect]
     Indication: MENINGITIS CRYPTOCOCCAL
     Dosage: 200 MG, INTRAVENOUS
     Route: 042
     Dates: start: 20040521, end: 20040527
  4. MEROPENEM (MEROPENEM) [Concomitant]
  5. NITROGLYCERIN [Concomitant]
  6. BUFFEIRN (ACETYLSALICYLIC ACID, ALUMINIUM GLYCINATE, MAGNESIUM CARBONA [Concomitant]
  7. MEROPENEM (MEROPENEM) [Concomitant]
  8. ACYCLOVIR [Concomitant]
  9. GANCICLOVIR SODIUM [Concomitant]
  10. IMMUNE GLOBULIN INTRAVENOUS (HUMAN) [Concomitant]
  11. PREDNISOLONE [Concomitant]
  12. CYCLOPHOSPHAMIDE [Concomitant]
  13. VINCRISTINE SULFATE [Concomitant]
  14. DOXORUBICIN HYDROCHLORIDE [Concomitant]

REACTIONS (2)
  - CARDIOMYOPATHY [None]
  - ELECTROCARDIOGRAM QT PROLONGED [None]
